FAERS Safety Report 6440916-8 (Version None)
Quarter: 2009Q4

REPORT INFORMATION
  Report Type: 
  Country: None (occurrence: None)
  Receive Date: 20091116
  Receipt Date: 20091111
  Transmission Date: 20100525
  Serious: Yes (Death, Hospitalization, Other)
  Sender: FDA-Public Use
  Company Number: PHEH2009US15478

PATIENT
  Sex: Female

DRUGS (5)
  1. EXJADE [Suspect]
     Indication: MYELODYSPLASTIC SYNDROME
     Dosage: 1000 MG, QD
     Route: 048
     Dates: start: 20090902, end: 20091003
  2. EXJADE [Suspect]
     Indication: IRON OVERLOAD
  3. BABY ASPIRIN [Concomitant]
  4. MULTIVITAMIN ^LAPPE^ [Concomitant]
  5. GARLIC [Concomitant]

REACTIONS (24)
  - ACUTE MYELOID LEUKAEMIA [None]
  - ASTHENIA [None]
  - BLOOD UREA INCREASED [None]
  - BONE PAIN [None]
  - CHEST PAIN [None]
  - DECREASED APPETITE [None]
  - DIFFERENTIAL WHITE BLOOD CELL COUNT ABNORMAL [None]
  - DISEASE PROGRESSION [None]
  - DYSPNOEA [None]
  - GAIT DISTURBANCE [None]
  - GASTROINTESTINAL SOUNDS ABNORMAL [None]
  - HERPES SIMPLEX [None]
  - HYPOXIA [None]
  - INSOMNIA [None]
  - MALAISE [None]
  - MUSCLE SPASMS [None]
  - NEUTROPENIA [None]
  - OXYGEN SATURATION DECREASED [None]
  - PANCYTOPENIA [None]
  - PLASMABLAST COUNT INCREASED [None]
  - PNEUMONITIS [None]
  - PULMONARY EMBOLISM [None]
  - PYREXIA [None]
  - SPLENOMEGALY [None]
